FAERS Safety Report 6157005-2 (Version None)
Quarter: 2009Q2

REPORT INFORMATION
  Report Type: 
  Country: None (occurrence: None)
  Receive Date: 20090416
  Receipt Date: 20090413
  Transmission Date: 20091009
  Serious: Yes (Death, Hospitalization)
  Sender: FDA-Public Use
  Company Number: US-BRISTOL-MYERS SQUIBB COMPANY-14585392

PATIENT
  Age: 54 Year
  Sex: Female
  Weight: 58 kg

DRUGS (1)
  1. SPRYCEL [Suspect]
     Indication: OVARIAN EPITHELIAL CANCER
     Dosage: (5) 20 MG TABLETS DAILY. TOTAL ADMINSTERED FOR COURSE 1 = 1400 MG.
     Route: 048
     Dates: start: 20081015, end: 20081028

REACTIONS (4)
  - DEHYDRATION [None]
  - MALIGNANT NEOPLASM PROGRESSION [None]
  - NAUSEA [None]
  - VOMITING [None]
